FAERS Safety Report 6579116-X (Version None)
Quarter: 2010Q1

REPORT INFORMATION
  Report Type: 
  Country: None (occurrence: None)
  Receive Date: 20100212
  Receipt Date: 20100201
  Transmission Date: 20100710
  Serious: Yes (Other)
  Sender: FDA-Public Use
  Company Number: US-JNJFOC-20091106083

PATIENT
  Age: 68 Year
  Sex: Male
  Weight: 77.11 kg

DRUGS (11)
  1. TYLENOL ARTHRITIS PAIN ER [Suspect]
     Route: 048
  2. TYLENOL ARTHRITIS PAIN ER [Suspect]
     Indication: ARTHRITIS
     Route: 048
  3. GLYBURIDE [Suspect]
     Indication: DIABETES MELLITUS
  4. NIFEDICAL [Suspect]
     Indication: HYPERTENSION
  5. LISINOPRIL [Suspect]
     Indication: HYPERTENSION
  6. CLONIDINE [Suspect]
     Indication: DRUG USE FOR UNKNOWN INDICATION
  7. SIMVASTATIN [Suspect]
     Indication: DRUG USE FOR UNKNOWN INDICATION
  8. PROPOXYPHENE [Suspect]
     Indication: DRUG USE FOR UNKNOWN INDICATION
  9. OMEPRAZOLE [Suspect]
     Indication: DRUG USE FOR UNKNOWN INDICATION
  10. GABAPENTIN [Suspect]
     Indication: DRUG USE FOR UNKNOWN INDICATION
  11. CLARITIN [Concomitant]
     Indication: MULTIPLE ALLERGIES

REACTIONS (5)
  - ABASIA [None]
  - DIABETES MELLITUS [None]
  - MUSCULAR WEAKNESS [None]
  - MYALGIA [None]
  - PAIN [None]
